FAERS Safety Report 7393477-3 (Version None)
Quarter: 2011Q2

REPORT INFORMATION
  Report Type: 
  Country: None (occurrence: None)
  Receive Date: 20110405
  Receipt Date: 20101029
  Transmission Date: 20111010
  Serious: Yes (Hospitalization, Other)
  Sender: FDA-Public Use
  Company Number: US-BAYER-201018640NA

PATIENT
  Sex: Female
  Weight: 79.819 kg

DRUGS (2)
  1. YASMIN [Suspect]
     Indication: PRODUCT USED FOR UNKNOWN INDICATION
     Dosage: UNK UNK, UNK
     Route: 048
     Dates: start: 20040505, end: 20070221
  2. DICLOFENAC POTASSIUM [Concomitant]

REACTIONS (8)
  - PORTAL VEIN THROMBOSIS [None]
  - PAIN [None]
  - CHROMATURIA [None]
  - PYREXIA [None]
  - BACK PAIN [None]
  - THROMBOSIS [None]
  - ABDOMINAL PAIN UPPER [None]
  - ABDOMINAL PAIN [None]
